FAERS Safety Report 5073033-2 (Version None)
Quarter: 2006Q3

REPORT INFORMATION
  Report Type: 
  Country: None (occurrence: None)
  Receive Date: 20060802
  Receipt Date: 20060718
  Transmission Date: 20061208
  Serious: Yes (Death)
  Sender: FDA-Public Use
  Company Number: 2006001162

PATIENT
  Age: 69 Year
  Sex: Male

DRUGS (7)
  1. TARCEVA [Suspect]
     Indication: LARGE CELL CARCINOMA OF THE RESPIRATORY TRACT STAGE UNSPECIFIED
     Dosage: 150 MG (QD), ORAL
     Route: 048
     Dates: start: 20060426, end: 20060502
  2. FUROSEMIDE [Concomitant]
  3. PANTOPRAZOLE SODIUM [Concomitant]
  4. SIMVASTATIN [Concomitant]
  5. ALBYL-E (ALBYL-ENTEROSOLUBILE) [Concomitant]
  6. CORDARONE [Concomitant]
  7. ANTIBIOTIC (ANTIBIOTICS) [Concomitant]

REACTIONS (3)
  - PETECHIAE [None]
  - PNEUMONIA [None]
  - THROMBOCYTOPENIA [None]
